FAERS Safety Report 25736437 (Version 3)
Quarter: 2025Q3

REPORT INFORMATION
  Report Type: Spontaneous
  Country: US (occurrence: US)
  Receive Date: 20250828
  Receipt Date: 20250922
  Transmission Date: 20251021
  Serious: Yes (Hospitalization, Other)
  Sender: GLENMARK
  Company Number: US-GLENMARK PHARMACEUTICALS-2025GMK103490

PATIENT
  Age: 32 Year
  Sex: Female

DRUGS (5)
  1. FLUPHENAZINE HYDROCHLORIDE [Suspect]
     Active Substance: FLUPHENAZINE HYDROCHLORIDE
     Indication: Schizoaffective disorder
     Dosage: 15 MILLIGRAM, BID (MONOTHERAPY)
     Route: 065
  2. FLUPHENAZINE HYDROCHLORIDE [Suspect]
     Active Substance: FLUPHENAZINE HYDROCHLORIDE
     Dosage: 15 MILLIGRAM, BID ( DUAL ANTIPSYCHOTIC THERAPY)
     Route: 065
  3. FLUPHENAZINE HYDROCHLORIDE [Suspect]
     Active Substance: FLUPHENAZINE HYDROCHLORIDE
     Dosage: 10 MILLIGRAM, BID (REVERTED TO MONOTHERAPY)
     Route: 065
  4. RISPERIDONE [Suspect]
     Active Substance: RISPERIDONE
     Indication: Schizoaffective disorder
     Dosage: 2 MILLIGRAM, BID (DUAL ANTIPSYCHOTIC THERAPY )
     Route: 065
  5. RISPERIDONE [Suspect]
     Active Substance: RISPERIDONE
     Dosage: 2 MILLIGRAM, BID (MONO THERAPY)
     Route: 065

REACTIONS (2)
  - Hyperprolactinaemia [Recovering/Resolving]
  - Delusion [Recovering/Resolving]
